FAERS Safety Report 7381449-4 (Version None)
Quarter: 2011Q1

REPORT INFORMATION
  Report Type: 
  Country: None (occurrence: None)
  Receive Date: 20110329
  Receipt Date: 20110318
  Transmission Date: 20110831
  Serious: Yes (Hospitalization, Other)
  Sender: FDA-Public Use
  Company Number: AU-PFIZER INC-2011066850

PATIENT
  Age: 32 Year
  Sex: Female
  Weight: 100 kg

DRUGS (7)
  1. WARFARIN [Suspect]
     Indication: PULMONARY EMBOLISM
     Dosage: 8 MG, DAILY
     Route: 048
     Dates: start: 20090601
  2. VENTOLIN [Suspect]
     Indication: ASTHMA
     Dosage: 6 PUFF(S), AS NEEDED
     Dates: start: 20100401
  3. PRISTIQ [Suspect]
     Indication: DEPRESSION
     Dosage: 50 MG, DAILY
     Route: 048
     Dates: start: 20100101
  4. DOXYCYCLINE HYCLATE [Suspect]
     Indication: ACNE
     Dosage: 100 MG, DAILY
     Route: 048
     Dates: start: 20090801
  5. OXYCONTIN [Suspect]
     Indication: PAIN
     Dosage: 10 MG, 2X/DAY
     Route: 048
     Dates: start: 20110301
  6. SOMAC [Suspect]
     Indication: GASTRIC ULCER
     Dosage: 40 MG DAILY
     Route: 048
     Dates: start: 20100401
  7. CLEXANE [Suspect]
     Indication: PULMONARY EMBOLISM
     Dosage: 100 MG, 2X/DAY
     Route: 058
     Dates: start: 20110301, end: 20110304

REACTIONS (1)
  - LIVER FUNCTION TEST ABNORMAL [None]
